FAERS Safety Report 25568622 (Version 2)
Quarter: 2025Q3

REPORT INFORMATION
  Report Type: Spontaneous
  Country: EU (occurrence: EU)
  Receive Date: 20250716
  Receipt Date: 20250723
  Transmission Date: 20251020
  Serious: Yes (Life-Threatening, Hospitalization, Other)
  Sender: SANDOZ
  Company Number: EU-002147023-NVSC2021PT258079

PATIENT
  Age: 79 Year
  Sex: Female

DRUGS (4)
  1. FLUCLOXACILLIN [Interacting]
     Active Substance: FLUCLOXACILLIN
     Indication: Procedural pain
     Dosage: 12 G, QD
     Route: 065
  2. FLUCLOXACILLIN [Interacting]
     Active Substance: FLUCLOXACILLIN
     Dosage: 12 G, Q24H
     Route: 065
  3. ACETAMINOPHEN [Interacting]
     Active Substance: ACETAMINOPHEN
     Indication: Procedural pain
     Dosage: 4 G, QD (HIGH DOSE)
     Route: 065
  4. ACETAMINOPHEN [Interacting]
     Active Substance: ACETAMINOPHEN
     Dosage: 4 G, Q24H
     Route: 065

REACTIONS (5)
  - Metabolic acidosis [Not Recovered/Not Resolved]
  - Drug interaction [Not Recovered/Not Resolved]
  - Dyspnoea [Not Recovered/Not Resolved]
  - Asthenia [Not Recovered/Not Resolved]
  - Respiration abnormal [Not Recovered/Not Resolved]
